FAERS Safety Report 5089332-4 (Version None)
Quarter: 2006Q3

REPORT INFORMATION
  Report Type: 
  Country: None (occurrence: None)
  Receive Date: 20060822
  Receipt Date: 20060807
  Transmission Date: 20061208
  Serious: Yes (Death, Hospitalization)
  Sender: FDA-Public Use
  Company Number: US200604004207

PATIENT
  Age: 87 Year
  Sex: Female
  Weight: 49.9 kg

DRUGS (10)
  1. FORTEO [Suspect]
     Indication: SPINAL COMPRESSION FRACTURE
     Dosage: 20 UG, DAILY (1/D),
     Dates: start: 20051105
  2. FORTEO [Concomitant]
  3. PREDNISONE TAB [Concomitant]
  4. ADVAIR DISKUS 100/50 [Concomitant]
  5. PREVACID [Concomitant]
  6. ATIVAN [Concomitant]
  7. CELEBREX [Concomitant]
  8. LIPITOR [Concomitant]
  9. ALLEGRA [Concomitant]
  10. SPIRIVA [Concomitant]

REACTIONS (2)
  - CEREBROVASCULAR ACCIDENT [None]
  - RESPIRATORY FAILURE [None]
